FAERS Safety Report 21853336 (Version 1)
Quarter: 2023Q1

REPORT INFORMATION
  Report Type: Spontaneous
  Country: IN (occurrence: IN)
  Receive Date: 20230112
  Receipt Date: 20230112
  Transmission Date: 20230417
  Serious: Yes (Other)
  Sender: FDA-Public Use
  Company Number: IN-PFIZER INC-2020017582

PATIENT
  Age: 36 Year
  Sex: Female

DRUGS (2)
  1. AROMASIN [Suspect]
     Active Substance: EXEMESTANE
     Indication: Hormone receptor positive breast cancer
     Dosage: 25 MG, 1X/DAY
     Route: 048
     Dates: start: 20181219
  2. LEUPROLIDE ACETATE [Concomitant]
     Active Substance: LEUPROLIDE ACETATE
     Dosage: UNK
     Dates: start: 20181219

REACTIONS (4)
  - Cholecystitis [Unknown]
  - Nephrolithiasis [Unknown]
  - Hot flush [Unknown]
  - Amenorrhoea [Unknown]
